FAERS Safety Report 20353515 (Version 2)
Quarter: 2022Q1

REPORT INFORMATION
  Report Type: Report from Study
  Country: CH (occurrence: CH)
  Receive Date: 20220119
  Receipt Date: 20220210
  Transmission Date: 20220423
  Serious: Yes (Death)
  Sender: FDA-Public Use
  Company Number: CH-ABBVIE-22K-151-4241425-00

PATIENT
  Sex: Male

DRUGS (2)
  1. CARBIDOPA\LEVODOPA [Suspect]
     Active Substance: CARBIDOPA\LEVODOPA
     Indication: Parkinson^s disease
     Dosage: MD: 6 ML, CRD: 3.8 ML/H, CRN: 0 ML/H, ED: 1.0 ML / 2 CASSETTES/16H THERAPY
     Route: 050
     Dates: start: 20211014, end: 20211213
  2. CARBIDOPA\LEVODOPA [Suspect]
     Active Substance: CARBIDOPA\LEVODOPA
     Dosage: MD: 6 ML, CRD: 6.5 ML/H, CRN: 6.2 ML/H, ED: 3.0 ML/24H THERAPY
     Route: 050
     Dates: start: 20211213, end: 20220118

REACTIONS (1)
  - Pneumonia [Fatal]
